FAERS Safety Report 19455710 (Version 1)
Quarter: 2021Q2

REPORT INFORMATION
  Report Type: Spontaneous
  Country: US (occurrence: US)
  Receive Date: 20210624
  Receipt Date: 20210624
  Transmission Date: 20210717
  Serious: Yes (Other)
  Sender: FDA-Public Use
  Company Number: None

PATIENT
  Age: 56 Year
  Sex: Male
  Weight: 94.5 kg

DRUGS (21)
  1. TUMERIC [Concomitant]
     Active Substance: HERBALS\TURMERIC
  2. AGMATINE SULFATE [Concomitant]
  3. K2 [Concomitant]
     Active Substance: JWH-018
  4. FLAX [Concomitant]
  5. IT IS POWDERED KRATOM FROM MALAYSIA [Suspect]
     Active Substance: HERBALS\MITRAGYNINE
     Indication: DRUG USE DISORDER
     Dosage: ?          QUANTITY:1 KILOGRAM;?
     Route: 048
     Dates: start: 20210601
  6. BRAHMI [Concomitant]
  7. MACA [Concomitant]
  8. ASHWAGANDHA [Concomitant]
     Active Substance: HERBALS
  9. VITAMIN B12 [Concomitant]
     Active Substance: CYANOCOBALAMIN
  10. POMEGRANATE [Concomitant]
     Active Substance: POMEGRANATE
  11. CITRULLINE MALLATE [Concomitant]
  12. THEANINE [Concomitant]
     Active Substance: THEANINE
  13. CINNEMON [Concomitant]
  14. AMLA [Concomitant]
  15. LIONS MANE [Concomitant]
  16. BEETROOT POWDER [Concomitant]
  17. NAC [Concomitant]
  18. TAURINE [Concomitant]
     Active Substance: TAURINE
  19. C [Concomitant]
  20. REISHI [Concomitant]
     Active Substance: REISHI
  21. VITAMIN D3 [Concomitant]
     Active Substance: CHOLECALCIFEROL

REACTIONS (5)
  - Swelling [None]
  - Malaise [None]
  - Inflammation [None]
  - Product quality issue [None]
  - Suspected product contamination [None]

NARRATIVE: CASE EVENT DATE: 20210601
